FAERS Safety Report 4565103-X (Version None)
Quarter: 2005Q1

REPORT INFORMATION
  Report Type: 
  Country: None (occurrence: None)
  Receive Date: 20050110
  Receipt Date: 20050110
  Transmission Date: 20050727
  Serious: No
  Sender: FDA-Public Use
  Company Number: None

PATIENT
  Age: 86 Year
  Sex: Female
  Weight: 55.7924 kg

DRUGS (1)
  1. MOEXIPRIL HCL [Suspect]
     Indication: HYPERTENSION
     Dosage: 15 MG QD PO
     Route: 048
     Dates: start: 20030729, end: 20030918

REACTIONS (1)
  - BLOOD PRESSURE INADEQUATELY CONTROLLED [None]
